FAERS Safety Report 13373297 (Version 1)
Quarter: 2017Q1

REPORT INFORMATION
  Report Type: Spontaneous
  Country: IT (occurrence: IT)
  Receive Date: 20170327
  Receipt Date: 20170327
  Transmission Date: 20170429
  Serious: Yes (Other)
  Sender: FDA-Public Use
  Company Number: IT-ASTRAZENECA-2017SE30154

PATIENT
  Age: 28210 Day
  Sex: Female

DRUGS (5)
  1. TRIATEC [Concomitant]
     Active Substance: RAMIPRIL
     Route: 048
  2. FUROSEMIDE. [Concomitant]
     Active Substance: FUROSEMIDE
     Route: 048
  3. BRILIQUE [Suspect]
     Active Substance: TICAGRELOR
     Route: 048
  4. CARDIOASPIRIN [Interacting]
     Active Substance: ASPIRIN
     Route: 048
  5. PARIET [Concomitant]
     Active Substance: RABEPRAZOLE SODIUM
     Route: 048

REACTIONS (2)
  - Drug interaction [Unknown]
  - Epistaxis [Recovering/Resolving]

NARRATIVE: CASE EVENT DATE: 20170208
